FAERS Safety Report 10785548 (Version 1)
Quarter: 2015Q1

REPORT INFORMATION
  Report Type: Spontaneous
  Country: US (occurrence: US)
  Receive Date: 20150211
  Receipt Date: 20150211
  Transmission Date: 20150721
  Serious: No
  Sender: FDA-Public Use
  Company Number: US-GLAXOSMITHKLINE-A1049230A

PATIENT

DRUGS (2)
  1. NICODERM CQ [Suspect]
     Active Substance: NICOTINE
     Indication: EX-TOBACCO USER
     Dates: start: 201310
  2. NICODERM CQ [Suspect]
     Active Substance: NICOTINE
     Indication: EX-TOBACCO USER

REACTIONS (5)
  - Application site irritation [Unknown]
  - Application site erythema [Unknown]
  - Application site pruritus [Unknown]
  - Application site swelling [Unknown]
  - Application site discolouration [Unknown]
